FAERS Safety Report 8265520-0 (Version None)
Quarter: 2012Q2

REPORT INFORMATION
  Report Type: 
  Country: None (occurrence: None)
  Receive Date: 20120406
  Receipt Date: 20120403
  Transmission Date: 20120825
  Serious: Yes (Other)
  Sender: FDA-Public Use
  Company Number: US-PFIZER INC-2012084536

PATIENT
  Sex: Female

DRUGS (2)
  1. PRAVASTATIN [Concomitant]
     Indication: BLOOD CHOLESTEROL INCREASED
     Dosage: UNK
  2. PREMARIN [Suspect]
     Dosage: UNK
     Dates: end: 20120301

REACTIONS (2)
  - CHEST PAIN [None]
  - DYSPNOEA [None]
